FAERS Safety Report 17597794 (Version 8)
Quarter: 2022Q2

REPORT INFORMATION
  Report Type: Spontaneous
  Country: US (occurrence: US)
  Receive Date: 20200330
  Receipt Date: 20220622
  Transmission Date: 20220720
  Serious: Yes (Hospitalization, Other)
  Sender: FDA-Public Use
  Company Number: US-PFIZER INC-2020124112

PATIENT
  Age: 60 Year
  Sex: Female

DRUGS (6)
  1. XELJANZ XR [Suspect]
     Active Substance: TOFACITINIB CITRATE
     Indication: Rheumatoid arthritis
     Dosage: 11 MG
     Route: 048
     Dates: start: 2019, end: 202205
  2. XELJANZ XR [Suspect]
     Active Substance: TOFACITINIB CITRATE
     Dosage: 11 MG, ONCE A DAY
     Route: 048
     Dates: start: 20190912
  3. XELJANZ XR [Suspect]
     Active Substance: TOFACITINIB CITRATE
     Dosage: 11 MG, 1X/DAY
     Route: 048
     Dates: start: 202203
  4. XELJANZ XR [Suspect]
     Active Substance: TOFACITINIB CITRATE
     Dosage: 11 MG, 1X/DAY
     Route: 048
     Dates: start: 202001
  5. PLAQUENIL [Concomitant]
     Active Substance: HYDROXYCHLOROQUINE SULFATE
     Dosage: UNK
  6. ARAVA [Concomitant]
     Active Substance: LEFLUNOMIDE
     Dosage: UNK

REACTIONS (27)
  - Head injury [Unknown]
  - Loss of consciousness [Unknown]
  - Asthma [Unknown]
  - Cardiac failure congestive [Unknown]
  - Anxiety [Unknown]
  - Cardiac disorder [Unknown]
  - Systemic lupus erythematosus [Unknown]
  - Atrioventricular node dysfunction [Unknown]
  - Pacemaker syndrome [Unknown]
  - Interstitial lung disease [Unknown]
  - Chronic kidney disease [Unknown]
  - Rheumatoid arthritis [Unknown]
  - Pneumonia [Unknown]
  - Depression [Unknown]
  - Fibromyalgia [Unknown]
  - Fall [Unknown]
  - Orthostatic hypotension [Unknown]
  - Dehydration [Unknown]
  - Pneumonia [Unknown]
  - Product dose omission issue [Unknown]
  - Bronchitis [Recovered/Resolved]
  - Urinary tract infection [Unknown]
  - Arthralgia [Recovered/Resolved]
  - Joint stiffness [Recovered/Resolved]
  - Gait inability [Recovered/Resolved]
  - Contusion [Unknown]
  - Skin laceration [Unknown]

NARRATIVE: CASE EVENT DATE: 20200416
